FAERS Safety Report 20646930 (Version 2)
Quarter: 2022Q2

REPORT INFORMATION
  Report Type: Other
  Country: RU (occurrence: None)
  Receive Date: 20220329
  Receipt Date: 20220406
  Transmission Date: 20220720
  Serious: Yes (Hospitalization)
  Sender: FDA-Public Use
  Company Number: RU-ROCHE-3056332

PATIENT
  Age: 56 Year
  Sex: Female
  Weight: 75 kg

DRUGS (6)
  1. OCRELIZUMAB [Suspect]
     Active Substance: OCRELIZUMAB
     Indication: Primary progressive multiple sclerosis
     Dosage: SHE RECEIVE MOST RECENT DOSE OF OCRELIZUMAB (600 MG) PRIOR TO AE/SAE ON 23/AUG/2021
     Route: 042
     Dates: start: 20210127
  2. CHLOROPYRAMINE [Concomitant]
     Active Substance: CHLOROPYRAMINE
     Route: 042
     Dates: start: 20210823, end: 20210823
  3. METHYLPREDNISOLONE [Concomitant]
     Active Substance: METHYLPREDNISOLONE
     Route: 042
     Dates: start: 20210823, end: 20210823
  4. SOLIFENACINUM [Concomitant]
     Route: 048
     Dates: start: 20210206
  5. LOSARTAN [Concomitant]
     Active Substance: LOSARTAN
     Route: 048
     Dates: start: 202003
  6. OMEPRAZOLE [Concomitant]
     Active Substance: OMEPRAZOLE
     Route: 048
     Dates: start: 20210910, end: 20210924

REACTIONS (1)
  - COVID-19 [Recovered/Resolved]

NARRATIVE: CASE EVENT DATE: 20210908
